FAERS Safety Report 4960531-2 (Version None)
Quarter: 2006Q1

REPORT INFORMATION
  Report Type: 
  Country: None (occurrence: None)
  Receive Date: 20060331
  Receipt Date: 20060331
  Transmission Date: 20060701
  Serious: Yes (Hospitalization)
  Sender: FDA-Public Use
  Company Number: None

PATIENT
  Age: 60 Year
  Sex: Male
  Weight: 92.7 kg

DRUGS (1)
  1. SALSALATE     500MG [Suspect]
     Indication: OSTEOARTHRITIS
     Dosage: 1000MG   BID   PO   (DURATION: SEVERAL YEARS)
     Route: 048

REACTIONS (6)
  - ALCOHOLISM [None]
  - ANAEMIA [None]
  - DUODENAL ULCER [None]
  - GASTROINTESTINAL HAEMORRHAGE [None]
  - LEUKOCYTOSIS [None]
  - STRESS [None]
